FAERS Safety Report 13473119 (Version 2)
Quarter: 2017Q2

REPORT INFORMATION
  Report Type: Spontaneous
  Country: US (occurrence: US)
  Receive Date: 20170424
  Receipt Date: 20170531
  Transmission Date: 20170830
  Serious: No
  Sender: FDA-Public Use
  Company Number: US-BAYER-2017-077541

PATIENT
  Sex: Female

DRUGS (1)
  1. BETASERON [Suspect]
     Active Substance: INTERFERON BETA-1B
     Dosage: 0.25 MG, QOD
     Route: 058

REACTIONS (6)
  - Injection site pain [None]
  - Injection site bruising [None]
  - Injection site reaction [None]
  - Heart rate increased [None]
  - Drug dose omission [None]
  - Injection site rash [None]
